FAERS Safety Report 6599435-0 (Version None)
Quarter: 2010Q1

REPORT INFORMATION
  Report Type: 
  Country: None (occurrence: None)
  Receive Date: 20100217
  Receipt Date: 20100203
  Transmission Date: 20100710
  Serious: Yes (Other)
  Sender: FDA-Public Use
  Company Number: 2010S1000265

PATIENT
  Age: 68 Year
  Sex: Female

DRUGS (8)
  1. PHOSPHOSODA FLAVOR NOT SPECIFIED [Suspect]
     Indication: COLONOSCOPY
     Dosage: 90 ML; TOTAL; PO
     Route: 048
     Dates: start: 20080109, end: 20080110
  2. ASPIRIN [Concomitant]
  3. MULTI-VITAMIN [Concomitant]
  4. MIACALCIN [Concomitant]
  5. FERGON [Concomitant]
  6. DIOVAN [Concomitant]
  7. NORVASC [Concomitant]
  8. LOTENSIN [Concomitant]

REACTIONS (2)
  - ANAEMIA [None]
  - RENAL FAILURE [None]
